FAERS Safety Report 21121269 (Version 1)
Quarter: 2022Q3

REPORT INFORMATION
  Report Type: Spontaneous
  Country: US (occurrence: None)
  Receive Date: 20220722
  Receipt Date: 20220722
  Transmission Date: 20221027
  Serious: Yes (Death)
  Sender: FDA-Public Use
  Company Number: None

PATIENT
  Sex: Male
  Weight: 58.5 kg

DRUGS (22)
  1. INLYTA [Suspect]
     Active Substance: AXITINIB
     Indication: Renal cell carcinoma
     Dosage: FREQUENCY : TWICE A DAY;?
     Route: 048
  2. GLIMEPIRIDE [Concomitant]
     Active Substance: GLIMEPIRIDE
  3. ACETAMINOPHEN\HYDROCODONE [Concomitant]
     Active Substance: ACETAMINOPHEN\HYDROCODONE
  4. METHOCARBAMOL [Concomitant]
     Active Substance: METHOCARBAMOL
  5. METOPROLOL [Concomitant]
     Active Substance: METOPROLOL
  6. NIFEDIPINE [Concomitant]
     Active Substance: NIFEDIPINE
  7. CALCIUM\VITAMIN D [Concomitant]
     Active Substance: CALCIUM\VITAMIN D
  8. DEXAMETHASONE [Concomitant]
     Active Substance: DEXAMETHASONE
  9. GABAPENTIN [Concomitant]
     Active Substance: GABAPENTIN
  10. CLONIDINE [Concomitant]
     Active Substance: CLONIDINE
  11. DICLOFENAC SODIUM [Concomitant]
     Active Substance: DICLOFENAC SODIUM
  12. FUROSEMIDE [Concomitant]
     Active Substance: FUROSEMIDE
  13. ACETAMINOPHEN\HYDROCODONE [Concomitant]
     Active Substance: ACETAMINOPHEN\HYDROCODONE
  14. LINZESS [Concomitant]
     Active Substance: LINACLOTIDE
  15. MELOXICAM [Concomitant]
     Active Substance: MELOXICAM
  16. METFORMIN [Concomitant]
     Active Substance: METFORMIN HYDROCHLORIDE
  17. METOPROLOL TARTRATE [Concomitant]
     Active Substance: METOPROLOL TARTRATE
  18. NALOXONE [Concomitant]
     Active Substance: NALOXONE
  19. NIFEDIPINE [Concomitant]
     Active Substance: NIFEDIPINE
  20. GAVILYTE G [Concomitant]
     Active Substance: POLYETHYLENE GLYCOL 3350\POTASSIUM CHLORIDE\SODIUM BICARBONATE\SODIUM CHLORIDE\SODIUM SULFATE
  21. potassium chloride, senna- docusate sodium [Concomitant]
  22. sulfamethoxazole-trimethoprim, cialis, tamsulosin [Concomitant]

REACTIONS (1)
  - Death [None]
